FAERS Safety Report 13455677 (Version 1)
Quarter: 2017Q2

REPORT INFORMATION
  Report Type: Spontaneous
  Country: US (occurrence: US)
  Receive Date: 20170419
  Receipt Date: 20170419
  Transmission Date: 20170830
  Serious: Yes (Other)
  Sender: FDA-Public Use
  Company Number: US-SUPERNUS PHARMACEUTICALS, INC.-2017SUP00079

PATIENT
  Age: 17 Year
  Sex: Female

DRUGS (4)
  1. ONE A DAY TEENAGER COMPLEX [Suspect]
     Active Substance: MINERALS\VITAMINS
     Dosage: UNK
     Dates: start: 201703
  2. OXTELLAR XR [Suspect]
     Active Substance: OXCARBAZEPINE
     Indication: SEIZURE
     Dosage: 3 TABLETS, 1X/DAY AT BEDTIME
  3. VITAMIN C [Suspect]
     Active Substance: ASCORBIC ACID
     Dosage: UNK
     Dates: start: 201703
  4. OCEANS OMEGA FISH OIL [Suspect]
     Active Substance: FISH OIL\OMEGA-3 FATTY ACIDS
     Dosage: UNK
     Dates: start: 201703

REACTIONS (3)
  - Drug ineffective [Unknown]
  - Seizure [Recovered/Resolved]
  - Drug interaction [Unknown]

NARRATIVE: CASE EVENT DATE: 201703
